FAERS Safety Report 9790761 (Version 5)
Quarter: 2018Q2

REPORT INFORMATION
  Report Type: Report from Study
  Country: CA (occurrence: CA)
  Receive Date: 20131231
  Receipt Date: 20180417
  Transmission Date: 20180711
  Serious: Yes (Life-Threatening, Hospitalization, Other)
  Sender: FDA-Public Use
  Company Number: CA-CELGENEUS-028-21880-13115696

PATIENT
  Age: 54 Year
  Sex: Female
  Weight: 63.2 kg

DRUGS (11)
  1. RITUXIMAB. [Suspect]
     Active Substance: RITUXIMAB
     Route: 041
     Dates: start: 20140219
  2. BENADRYL [Concomitant]
     Active Substance: DIPHENHYDRAMINE HYDROCHLORIDE
     Indication: DRUG HYPERSENSITIVITY
     Dosage: 50 MILLIGRAM
     Route: 065
     Dates: start: 20131118, end: 20131123
  3. REVLIMID [Suspect]
     Active Substance: LENALIDOMIDE
     Dosage: 10 MILLIGRAM
     Route: 048
  4. RITUXIMAB. [Suspect]
     Active Substance: RITUXIMAB
     Indication: LYMPHOMA
     Dosage: 375 MILLIGRAM/SQ. METER
     Route: 065
     Dates: start: 20131112, end: 20131120
  5. TYLENOL [Suspect]
     Active Substance: ACETAMINOPHEN
     Indication: PREMEDICATION
     Dosage: 650 MILLIGRAM
     Route: 048
     Dates: start: 20131112, end: 20131120
  6. REVLIMID [Suspect]
     Active Substance: LENALIDOMIDE
     Indication: LYMPHOMA
     Dosage: 20 MILLIGRAM
     Route: 048
     Dates: start: 20131113, end: 20131122
  7. RITUXIMAB. [Suspect]
     Active Substance: RITUXIMAB
     Route: 065
     Dates: start: 20140122
  8. BENADRYL [Concomitant]
     Active Substance: DIPHENHYDRAMINE HYDROCHLORIDE
     Indication: DRUG HYPERSENSITIVITY
     Dosage: 25 MILLIGRAM
     Route: 041
     Dates: start: 20131112, end: 20131112
  9. ALLOPURINOL. [Suspect]
     Active Substance: ALLOPURINOL
     Indication: PROPHYLAXIS
     Dosage: 300 MILLIGRAM
     Route: 048
     Dates: start: 20131112, end: 20131118
  10. ACETYLSALICYLIC ACID [Concomitant]
     Active Substance: ASPIRIN
     Indication: THROMBOSIS PROPHYLAXIS
     Dosage: 325 MILLIGRAM
     Route: 065
     Dates: start: 20131111, end: 20131122
  11. RITUXIMAB. [Suspect]
     Active Substance: RITUXIMAB
     Route: 041
     Dates: start: 20140129

REACTIONS (10)
  - Haematocrit decreased [Unknown]
  - Neutrophil count increased [Unknown]
  - Drug hypersensitivity [Unknown]
  - Bacteraemia [Recovered/Resolved]
  - Haemoglobin decreased [Unknown]
  - Platelet count increased [Unknown]
  - Neutrophil count decreased [Unknown]
  - Thrombocytopenia [Recovered/Resolved]
  - Stevens-Johnson syndrome [Recovered/Resolved]
  - Septic shock [Recovered/Resolved]

NARRATIVE: CASE EVENT DATE: 20131123
